FAERS Safety Report 5249974-X (Version None)
Quarter: 2007Q1

REPORT INFORMATION
  Report Type: 
  Country: None (occurrence: None)
  Receive Date: 20070228
  Receipt Date: 20060113
  Transmission Date: 20070707
  Serious: No
  Sender: FDA-Public Use
  Company Number: US-GLAXOSMITHKLINE-A0589218A

PATIENT
  Sex: Male

DRUGS (5)
  1. LAMICTAL [Suspect]
     Indication: BIPOLAR DISORDER
     Dosage: 175MG PER DAY
     Route: 048
  2. SYNTHROID [Concomitant]
  3. LORAZEPAM [Concomitant]
  4. VIAGRA [Concomitant]
  5. CIALIS [Concomitant]

REACTIONS (1)
  - INSOMNIA [None]
